FAERS Safety Report 12957096 (Version 1)
Quarter: 2016Q4

REPORT INFORMATION
  Report Type: Report from Study
  Country: TH (occurrence: TH)
  Receive Date: 20161118
  Receipt Date: 20161118
  Transmission Date: 20170207
  Serious: Yes (Other)
  Sender: FDA-Public Use
  Company Number: TH-BAYER-2016-217989

PATIENT
  Sex: Male

DRUGS (2)
  1. STIVARGA [Suspect]
     Active Substance: REGORAFENIB
     Dosage: 120 MG PER DAY
  2. STIVARGA [Suspect]
     Active Substance: REGORAFENIB
     Dosage: 160 MG PER DAY

REACTIONS (2)
  - Skin wound [None]
  - Bone marrow failure [None]
